FAERS Safety Report 10369136 (Version 2)
Quarter: 2014Q3

REPORT INFORMATION
  Report Type: Spontaneous
  Country: IT (occurrence: IT)
  Receive Date: 20140807
  Receipt Date: 20140812
  Transmission Date: 20150326
  Serious: Yes (Disabling)
  Sender: FDA-Public Use
  Company Number: IT-US-EMD SERONO, INC.-7310517

PATIENT
  Age: 48 Year
  Sex: Male

DRUGS (1)
  1. REBIF [Suspect]
     Active Substance: INTERFERON BETA-1A
     Indication: MULTIPLE SCLEROSIS
     Dosage: 3 DOSE UNIT
     Route: 058
     Dates: start: 20070101

REACTIONS (2)
  - Anti-interferon antibody [Unknown]
  - Psoriasis [Unknown]

NARRATIVE: CASE EVENT DATE: 201204
